FAERS Safety Report 15058144 (Version 1)
Quarter: 2018Q2

REPORT INFORMATION
  Report Type: Spontaneous
  Country: US (occurrence: US)
  Receive Date: 20180625
  Receipt Date: 20180625
  Transmission Date: 20180711
  Serious: Yes (Other)
  Sender: FDA-Public Use
  Company Number: US-BAUSCH-BL-2018-017274

PATIENT
  Sex: Female

DRUGS (2)
  1. EFUDEX [Suspect]
     Active Substance: FLUOROURACIL
     Dosage: EVERY OTHER DAY
     Route: 061
     Dates: start: 201805
  2. EFUDEX [Suspect]
     Active Substance: FLUOROURACIL
     Indication: PRECANCEROUS SKIN LESION
     Dosage: ONCE DAILY
     Route: 061

REACTIONS (5)
  - Off label use [Not Recovered/Not Resolved]
  - Concussion [Unknown]
  - Ocular hyperaemia [Unknown]
  - Impaired healing [Unknown]
  - Headache [Not Recovered/Not Resolved]

NARRATIVE: CASE EVENT DATE: 201804
